FAERS Safety Report 15044614 (Version 1)
Quarter: 2018Q2

REPORT INFORMATION
  Report Type: Spontaneous
  Country: US (occurrence: US)
  Receive Date: 20180621
  Receipt Date: 20180621
  Transmission Date: 20180711
  Serious: No
  Sender: FDA-Public Use
  Company Number: US-INCYTE CORPORATION-2018IN005872

PATIENT

DRUGS (1)
  1. JAKAFI [Suspect]
     Active Substance: RUXOLITINIB
     Indication: THROMBOCYTOPENIA
     Dosage: 5 MG, QD
     Route: 048
     Dates: start: 201509

REACTIONS (3)
  - Ear infection [Not Recovered/Not Resolved]
  - Off label use [Unknown]
  - Inappropriate schedule of drug administration [Unknown]
